FAERS Safety Report 8995914 (Version 2)
Quarter: 2013Q4

REPORT INFORMATION
  Report Type: Spontaneous
  Country: US (occurrence: US)
  Receive Date: 20130103
  Receipt Date: 20131108
  Transmission Date: 20140711
  Serious: Yes (Hospitalization, Disabling, Other)
  Sender: FDA-Public Use
  Company Number: US-009507513-2010SP063654

PATIENT
  Sex: Female
  Weight: 61.24 kg

DRUGS (8)
  1. NUVARING [Suspect]
     Indication: DYSMENORRHOEA
     Route: 067
     Dates: start: 20040520
  2. NUVARING [Suspect]
     Indication: FUNGAL INFECTION
     Dates: start: 20080825, end: 200812
  3. NUVARING [Suspect]
     Indication: VAGINITIS BACTERIAL
  4. NUVARING [Suspect]
     Indication: VAGINAL PH ABNORMAL
  5. LEXAPRO [Suspect]
     Indication: PRODUCT USED FOR UNKNOWN INDICATION
  6. REGLAN [Suspect]
     Indication: PRODUCT USED FOR UNKNOWN INDICATION
  7. COUMADIN [Suspect]
     Indication: PULMONARY EMBOLISM
     Dates: start: 20081217, end: 20090514
  8. COUMADIN [Suspect]
     Dates: start: 2009

REACTIONS (43)
  - Hypercoagulation [Unknown]
  - Muscle strain [Unknown]
  - Fibromyalgia [Not Recovered/Not Resolved]
  - Pulmonary embolism [Recovered/Resolved with Sequelae]
  - Cerebellar haemorrhage [Unknown]
  - Vertigo [Not Recovered/Not Resolved]
  - Epstein-Barr virus infection [Unknown]
  - Dyspnoea [Unknown]
  - Insomnia [Unknown]
  - Vaginal discharge [Unknown]
  - Lichenoid keratosis [Unknown]
  - Viral infection [Unknown]
  - Mastoptosis [Unknown]
  - Ovarian cyst [Unknown]
  - Drug intolerance [Not Recovered/Not Resolved]
  - Inappropriate schedule of drug administration [Unknown]
  - Feeling jittery [Unknown]
  - Herpes simplex [Unknown]
  - Pharyngitis [Unknown]
  - Acute sinusitis [Not Recovered/Not Resolved]
  - Influenza like illness [Unknown]
  - Bursitis [Unknown]
  - Back pain [Unknown]
  - Dystonia [Recovered/Resolved]
  - Iron deficiency anaemia [Not Recovered/Not Resolved]
  - Vitamin B12 deficiency [Unknown]
  - Folate deficiency [Unknown]
  - Depression [Unknown]
  - Pelvic pain [Not Recovered/Not Resolved]
  - Metrorrhagia [Not Recovered/Not Resolved]
  - Migraine [Not Recovered/Not Resolved]
  - Off label use [Unknown]
  - Breast disorder [Unknown]
  - Gastrooesophageal reflux disease [Unknown]
  - Lymphadenectomy [Unknown]
  - Pain [Unknown]
  - Fatigue [Unknown]
  - Sleep apnoea syndrome [Unknown]
  - Headache [Unknown]
  - Sleep apnoea syndrome [Unknown]
  - Concussion [Unknown]
  - Loss of consciousness [Unknown]
  - Drug hypersensitivity [Unknown]
